FAERS Safety Report 14263328 (Version 1)
Quarter: 2017Q4

REPORT INFORMATION
  Report Type: Spontaneous
  Country: US (occurrence: US)
  Receive Date: 20171208
  Receipt Date: 20171208
  Transmission Date: 20180321
  Serious: No
  Sender: FDA-Public Use
  Company Number: US-HORIZON-PEN-0544-2017

PATIENT
  Age: 47 Year
  Sex: Female

DRUGS (4)
  1. LEVOTHYROXINE. [Concomitant]
     Active Substance: LEVOTHYROXINE
     Indication: THYROID DISORDER
  2. PENNSAID [Suspect]
     Active Substance: DICLOFENAC SODIUM
     Indication: ARTHRITIS
     Dosage: AS NEEDED
  3. GABAPENTIN. [Concomitant]
     Active Substance: GABAPENTIN
  4. CYMBALTA [Concomitant]
     Active Substance: DULOXETINE HYDROCHLORIDE
     Indication: DEPRESSION

REACTIONS (4)
  - Application site papules [Unknown]
  - Application site vesicles [Unknown]
  - Off label use [Unknown]
  - Pyrexia [Unknown]

NARRATIVE: CASE EVENT DATE: 20171129
